FAERS Safety Report 17112270 (Version 1)
Quarter: 2019Q4

REPORT INFORMATION
  Report Type: Spontaneous
  Country: SE (occurrence: SE)
  Receive Date: 20191204
  Receipt Date: 20191204
  Transmission Date: 20200122
  Serious: Yes (Other)
  Sender: FDA-Public Use
  Company Number: SE-PFIZER INC-2019517684

PATIENT
  Age: 75 Year
  Sex: Male

DRUGS (16)
  1. IMOVANE [Concomitant]
     Active Substance: ZOPICLONE
     Dosage: UNK
  2. SPIRONOLACTONE. [Suspect]
     Active Substance: SPIRONOLACTONE
     Indication: CARDIAC FAILURE
  3. PREDNISOLONE. [Concomitant]
     Active Substance: PREDNISOLONE
     Dosage: UNK
  4. ALENDRONIC ACID [Concomitant]
     Active Substance: ALENDRONIC ACID
     Dosage: UNK
  5. ATORVASTATIN [Concomitant]
     Active Substance: ATORVASTATIN
     Dosage: UNK
  6. SUSCARD [Concomitant]
     Active Substance: NITROGLYCERIN
     Dosage: UNK
  7. ZYTIGA [Concomitant]
     Active Substance: ABIRATERONE ACETATE
     Dosage: UNK
  8. XALCOM [Concomitant]
     Active Substance: LATANOPROST\TIMOLOL
     Dosage: UNK
  9. NOVOMIX [Concomitant]
     Active Substance: INSULIN ASPART
     Dosage: UNK
  10. KALCIPOS-D [Concomitant]
     Active Substance: CALCIUM CARBONATE\CHOLECALCIFEROL
     Dosage: UNK
  11. STILNOCT [Concomitant]
     Active Substance: ZOLPIDEM TARTRATE
     Dosage: UNK
     Dates: start: 20190420
  12. LEUPRORELIN [Concomitant]
     Active Substance: LEUPROLIDE ACETATE
     Dosage: UNK
     Dates: start: 20181201
  13. SPIRONOLACTONE. [Suspect]
     Active Substance: SPIRONOLACTONE
     Indication: PERIPHERAL SWELLING
     Dosage: 25 MG, 1X/DAY
     Route: 048
     Dates: start: 20190514, end: 20190709
  14. OMEPRAZOLE. [Concomitant]
     Active Substance: OMEPRAZOLE
     Dosage: UNK
  15. OXASCAND [Concomitant]
     Active Substance: OXAZEPAM
     Dosage: UNK
     Dates: start: 20181201
  16. TROMBYL [Concomitant]
     Active Substance: ASPIRIN
     Dosage: UNK

REACTIONS (1)
  - Prostatic specific antigen increased [Recovering/Resolving]

NARRATIVE: CASE EVENT DATE: 20190624
